FAERS Safety Report 8185913-X (Version None)
Quarter: 2012Q1

REPORT INFORMATION
  Report Type: 
  Country: None (occurrence: None)
  Receive Date: 20120305
  Receipt Date: 20120224
  Transmission Date: 20120608
  Serious: Yes (Other)
  Sender: FDA-Public Use
  Company Number: IT-ASTRAZENECA-2012SE13016

PATIENT
  Sex: Female

DRUGS (1)
  1. FASLODEX [Suspect]
     Indication: BREAST CANCER FEMALE
     Dosage: 500 MG DAILY (TWO 250 MG VIALS) FOR TWO MONTHS
     Route: 030

REACTIONS (3)
  - ERYTHEMA [None]
  - PAIN [None]
  - ADMINISTRATION SITE ABSCESS [None]
